FAERS Safety Report 7421159-8 (Version None)
Quarter: 2011Q2

REPORT INFORMATION
  Report Type: 
  Country: None (occurrence: None)
  Receive Date: 20110418
  Receipt Date: 20110408
  Transmission Date: 20111010
  Serious: Yes (Death, Hospitalization)
  Sender: FDA-Public Use
  Company Number: US-MPIJNJ-2011-01129

PATIENT
  Sex: Male
  Weight: 82.54 kg

DRUGS (2)
  1. RITUXAN [Concomitant]
     Indication: MANTLE CELL LYMPHOMA
     Dosage: UNK
  2. VELCADE [Suspect]
     Indication: MANTLE CELL LYMPHOMA
     Dosage: 1.3 MG/M2, CYCLIC
     Route: 042
     Dates: start: 20110221, end: 20110224

REACTIONS (7)
  - HYPOVENTILATION [None]
  - DEHYDRATION [None]
  - RESPIRATORY FAILURE [None]
  - DIARRHOEA [None]
  - MANTLE CELL LYMPHOMA [None]
  - ABDOMINAL DISTENSION [None]
  - OEDEMA PERIPHERAL [None]
